FAERS Safety Report 9283400 (Version 1)
Quarter: 2013Q2

REPORT INFORMATION
  Report Type: Spontaneous
  Country: US (occurrence: US)
  Receive Date: 20130510
  Receipt Date: 20130510
  Transmission Date: 20140414
  Serious: No
  Sender: FDA-Public Use
  Company Number: US-GLAXOSMITHKLINE-A1005579A

PATIENT
  Sex: Female

DRUGS (6)
  1. TYKERB [Suspect]
     Indication: BREAST CANCER
     Dosage: 1000MG PER DAY
     Route: 048
     Dates: start: 20121126
  2. ZOFRAN [Suspect]
     Indication: NAUSEA
     Route: 065
  3. UNSPECIFIED MEDICATION [Suspect]
     Indication: BREAST CANCER
     Route: 042
  4. PROMETHAZINE [Concomitant]
  5. KAOPECTATE [Concomitant]
  6. IMODIUM [Concomitant]

REACTIONS (7)
  - Nausea [Not Recovered/Not Resolved]
  - Vomiting [Unknown]
  - Diarrhoea [Not Recovered/Not Resolved]
  - Fatigue [Unknown]
  - Drug ineffective [Not Recovered/Not Resolved]
  - Thirst [Unknown]
  - Dehydration [Unknown]
